FAERS Safety Report 9467995 (Version 1)
Quarter: 2013Q3

REPORT INFORMATION
  Report Type: Spontaneous
  Country: US (occurrence: US)
  Receive Date: 20130821
  Receipt Date: 20130821
  Transmission Date: 20140515
  Serious: No
  Sender: FDA-Public Use
  Company Number: US-BAYER-2013-099415

PATIENT
  Age: 11 Year
  Sex: Male

DRUGS (1)
  1. MAGNEVIST [Suspect]
     Dosage: 8.3 ML, ONCE
     Dates: start: 20130813, end: 20130813

REACTIONS (2)
  - Urticaria [Recovered/Resolved]
  - Rash [Not Recovered/Not Resolved]
